FAERS Safety Report 11095459 (Version 1)
Quarter: 2015Q2

REPORT INFORMATION
  Report Type: Spontaneous
  Country: US (occurrence: US)
  Receive Date: 20150506
  Receipt Date: 20150506
  Transmission Date: 20150821
  Serious: Yes (Other)
  Sender: FDA-Public Use
  Company Number: US-BAYER-2015-194727

PATIENT
  Age: 54 Year
  Sex: Female
  Weight: 113 kg

DRUGS (6)
  1. KLONOPIN [Concomitant]
     Active Substance: CLONAZEPAM
  2. ZANAFLEX [Concomitant]
     Active Substance: TIZANIDINE HYDROCHLORIDE
  3. AFRIN SEVERE CONGESTION [Suspect]
     Active Substance: OXYMETAZOLINE HYDROCHLORIDE
     Indication: NASAL CONGESTION
     Dosage: QD
     Route: 045
     Dates: start: 1984
  4. HYDROCODONE [HYDROCODONE] [Concomitant]
     Active Substance: HYDROCODONE
  5. CELEXA [Concomitant]
     Active Substance: CITALOPRAM HYDROBROMIDE
  6. AMBIEN [Concomitant]
     Active Substance: ZOLPIDEM TARTRATE

REACTIONS (2)
  - Product use issue [Unknown]
  - Drug dependence [Unknown]

NARRATIVE: CASE EVENT DATE: 1984
